FAERS Safety Report 5863146-7 (Version None)
Quarter: 2008Q3

REPORT INFORMATION
  Report Type: 
  Country: None (occurrence: None)
  Receive Date: 20080818
  Receipt Date: 20080624
  Transmission Date: 20090109
  Serious: No
  Sender: FDA-Public Use
  Company Number: WAES 0806USA08326

PATIENT
  Age: 72 Year
  Sex: Male

DRUGS (6)
  1. JANUVIA [Suspect]
     Indication: TYPE 2 DIABETES MELLITUS
     Dosage: 100 MG/DAILY/PO
     Route: 048
     Dates: start: 20070101
  2. COZAAR [Concomitant]
  3. FLOMAX [Concomitant]
  4. FLUTINASE [Concomitant]
  5. HYDRODIURIL [Concomitant]
  6. TRICOR [Concomitant]

REACTIONS (3)
  - OROPHARYNGEAL PAIN [None]
  - PHARYNGEAL OEDEMA [None]
  - RHINORRHOEA [None]
